FAERS Safety Report 19975816 (Version 1)
Quarter: 2021Q4

REPORT INFORMATION
  Report Type: Spontaneous
  Country: US (occurrence: US)
  Receive Date: 20211020
  Receipt Date: 20211020
  Transmission Date: 20220303
  Serious: No
  Sender: FDA-Public Use
  Company Number: US-NESTLEHEALTHSCIENCE-202000134

PATIENT
  Age: 83 Year
  Sex: Male
  Weight: 61 kg

DRUGS (1)
  1. ZENPEP [Suspect]
     Active Substance: PANCRELIPASE AMYLASE\PANCRELIPASE LIPASE\PANCRELIPASE PROTEASE
     Dosage: 40,000 USP 3 TIMES PER DAY WITH HIS MEALS
     Route: 065
     Dates: start: 2020

REACTIONS (2)
  - Nausea [Unknown]
  - Faeces hard [Unknown]
